FAERS Safety Report 7943690-9 (Version None)
Quarter: 2011Q4

REPORT INFORMATION
  Report Type: 
  Country: None (occurrence: None)
  Receive Date: 20111128
  Receipt Date: 20111121
  Transmission Date: 20120403
  Serious: Yes (Hospitalization)
  Sender: FDA-Public Use
  Company Number: US-US-EMD SERONO, INC.-7042906

PATIENT
  Sex: Female
  Weight: 73 kg

DRUGS (5)
  1. UNSPECIFIED DIABETES MEDICATION [Concomitant]
     Indication: DIABETES MELLITUS
     Route: 048
  2. NORVASC [Concomitant]
     Indication: HYPERTENSION
  3. REBIF [Suspect]
     Indication: MULTIPLE SCLEROSIS
     Route: 058
     Dates: start: 20080623
  4. INSULIN [Concomitant]
     Indication: DIABETES MELLITUS
  5. HYDROCHLOROTHIAZIDE [Concomitant]
     Indication: HYPERTENSION

REACTIONS (5)
  - MULTIPLE SCLEROSIS [None]
  - DIABETIC KETOACIDOSIS [None]
  - RIB FRACTURE [None]
  - CONTUSION [None]
  - LIGAMENT SPRAIN [None]
